FAERS Safety Report 9461414 (Version 1)
Quarter: 2013Q3

REPORT INFORMATION
  Report Type: Spontaneous
  Country: US (occurrence: US)
  Receive Date: 20130816
  Receipt Date: 20130816
  Transmission Date: 20140515
  Serious: Yes (Hospitalization)
  Sender: FDA-Public Use
  Company Number: US-GENZYME-CERZ-1003121

PATIENT
  Age: 16 Year
  Sex: Male
  Weight: 70.39 kg

DRUGS (1)
  1. CEREZYME [Suspect]
     Indication: GAUCHER^S DISEASE
     Dosage: 39.78 U/KG, Q2W
     Route: 042

REACTIONS (1)
  - Road traffic accident [Unknown]
